FAERS Safety Report 23461196 (Version 1)
Quarter: 2024Q1

REPORT INFORMATION
  Report Type: Spontaneous
  Country: US (occurrence: US)
  Receive Date: 20240131
  Receipt Date: 20240131
  Transmission Date: 20240410
  Serious: Yes (Other)
  Sender: FDA-Public Use
  Company Number: US-PFIZER INC-202400027368

PATIENT
  Age: 63 Year
  Sex: Female

DRUGS (14)
  1. XELJANZ XR [Suspect]
     Active Substance: TOFACITINIB CITRATE
     Dosage: UNK
     Dates: start: 202307
  2. ALLOPURINOL [Concomitant]
     Active Substance: ALLOPURINOL
  3. ALPHA LIPOIC [Concomitant]
  4. ATORVASTATIN [Concomitant]
     Active Substance: ATORVASTATIN
  5. BUPROPION HYDROCHLORIDE XL [Concomitant]
     Active Substance: BUPROPION HYDROCHLORIDE
  6. CLARITIN [Concomitant]
     Active Substance: LORATADINE
  7. COLACE [Concomitant]
     Active Substance: DOCUSATE SODIUM
  8. FENTANYL [Concomitant]
     Active Substance: FENTANYL\FENTANYL CITRATE
  9. LINZESS [Concomitant]
     Active Substance: LINACLOTIDE
  10. PANTOPRAZOLE [Concomitant]
     Active Substance: PANTOPRAZOLE
  11. ACETAMINOPHEN\OXYCODONE HYDROCHLORIDE\OXYCODONE TEREPHTHALATE [Concomitant]
     Active Substance: ACETAMINOPHEN\OXYCODONE HYDROCHLORIDE\OXYCODONE TEREPHTHALATE
  12. TELMISARTAN [Concomitant]
     Active Substance: TELMISARTAN
  13. TRINTELLIX [Concomitant]
     Active Substance: VORTIOXETINE HYDROBROMIDE
  14. TYLENOL [Concomitant]
     Active Substance: ACETAMINOPHEN

REACTIONS (4)
  - Knee operation [Unknown]
  - Sinusitis [Not Recovered/Not Resolved]
  - Arthralgia [Not Recovered/Not Resolved]
  - Drug ineffective [Unknown]
